FAERS Safety Report 5493553-6 (Version None)
Quarter: 2007Q4

REPORT INFORMATION
  Report Type: 
  Country: None (occurrence: None)
  Receive Date: 20071023
  Receipt Date: 20071015
  Transmission Date: 20080405
  Serious: Yes (Hospitalization)
  Sender: FDA-Public Use
  Company Number: US-ELI_LILLY_AND_COMPANY-US200710003714

PATIENT
  Sex: Female

DRUGS (2)
  1. HUMALOG [Suspect]
     Indication: DIABETES MELLITUS
     Dosage: 3 UNK, OTHER
     Dates: start: 20040101
  2. LANTUS [Concomitant]
     Indication: DIABETES MELLITUS

REACTIONS (5)
  - CORNEAL TRANSPLANT [None]
  - CYSTIC FIBROSIS [None]
  - HYPERTENSION [None]
  - OESOPHAGEAL STENOSIS [None]
  - PNEUMONIA [None]
